FAERS Safety Report 15424573 (Version 1)
Quarter: 2018Q3

REPORT INFORMATION
  Report Type: Spontaneous
  Country: US (occurrence: US)
  Receive Date: 20180925
  Receipt Date: 20180925
  Transmission Date: 20181010
  Serious: Yes (Other)
  Sender: FDA-Public Use
  Company Number: US-OTSUKA-2018_031439

PATIENT
  Age: 59 Year
  Sex: Female

DRUGS (5)
  1. REXULTI [Suspect]
     Active Substance: BREXPIPRAZOLE
     Dosage: 0.5 MG, UNK
     Route: 048
  2. VRAYLAR [Suspect]
     Active Substance: CARIPRAZINE
     Indication: MAJOR DEPRESSION
     Dosage: UNK
     Route: 065
  3. REXULTI [Suspect]
     Active Substance: BREXPIPRAZOLE
     Indication: MAJOR DEPRESSION
     Dosage: 2 MG, UNK
     Route: 065
  4. REXULTI [Suspect]
     Active Substance: BREXPIPRAZOLE
     Dosage: 1 MG, UNK
     Route: 065
  5. REXULTI [Suspect]
     Active Substance: BREXPIPRAZOLE
     Dosage: 2?3 YEAR AGO
     Route: 048

REACTIONS (8)
  - Diabetes mellitus inadequate control [Not Recovered/Not Resolved]
  - Constipation [Unknown]
  - Blood creatinine abnormal [Unknown]
  - Disease recurrence [Unknown]
  - Abdominal pain [Unknown]
  - Abdominal distension [Unknown]
  - Dyspepsia [Unknown]
  - Back disorder [Recovering/Resolving]

NARRATIVE: CASE EVENT DATE: 20180907
